FAERS Safety Report 19402509 (Version 1)
Quarter: 2021Q2

REPORT INFORMATION
  Report Type: Report from Study
  Country: None (occurrence: CA)
  Receive Date: 20210611
  Receipt Date: 20210611
  Transmission Date: 20210717
  Serious: Yes (Other)
  Sender: FDA-Public Use
  Company Number: CA-ABBVIE-21K-028-3943866-00

PATIENT
  Age: 66 Year
  Sex: Male

DRUGS (1)
  1. HUMIRA [Suspect]
     Active Substance: ADALIMUMAB
     Indication: CROHN^S DISEASE
     Route: 058
     Dates: start: 20200918

REACTIONS (3)
  - Diarrhoea [Not Recovered/Not Resolved]
  - Skin laceration [Unknown]
  - Peripheral artery stent insertion [Unknown]

NARRATIVE: CASE EVENT DATE: 202105
